FAERS Safety Report 20500181 (Version 2)
Quarter: 2022Q1

REPORT INFORMATION
  Report Type: Spontaneous
  Country: DK (occurrence: DK)
  Receive Date: 20220222
  Receipt Date: 20220302
  Transmission Date: 20220423
  Serious: Yes (Other)
  Sender: FDA-Public Use
  Company Number: DK-BAYER-2022A026153

PATIENT
  Age: 26 Year
  Sex: Female

DRUGS (1)
  1. KYLEENA [Suspect]
     Active Substance: LEVONORGESTREL
     Indication: Contraception
     Dosage: 17.5?G/DAY
     Route: 015
     Dates: start: 202106

REACTIONS (3)
  - Ectopic pregnancy with contraceptive device [None]
  - Intra-abdominal haemorrhage [None]
  - Drug ineffective [None]

NARRATIVE: CASE EVENT DATE: 20220214
